FAERS Safety Report 11925142 (Version 2)
Quarter: 2016Q1

REPORT INFORMATION
  Report Type: Spontaneous
  Country: IT (occurrence: IT)
  Receive Date: 20160118
  Receipt Date: 20160201
  Transmission Date: 20160526
  Serious: Yes (Death, Hospitalization, Other)
  Sender: FDA-Public Use
  Company Number: IT-GILEAD-2016-0192488

PATIENT
  Age: 72 Year
  Sex: Male
  Weight: 62 kg

DRUGS (11)
  1. HARVONI [Suspect]
     Active Substance: LEDIPASVIR\SOFOSBUVIR
     Indication: HEPATITIS C
     Dosage: 1 DF, QD
     Route: 048
     Dates: start: 20151027, end: 20151228
  2. RIFAXIMIN [Concomitant]
     Active Substance: RIFAXIMIN
  3. ALDACTONE [Suspect]
     Active Substance: SPIRONOLACTONE
     Dosage: 100 MG, QD
     Route: 048
  4. PANTOPRAZOLE [Concomitant]
     Active Substance: PANTOPRAZOLE SODIUM
  5. TORADIUR                           /01036501/ [Suspect]
     Active Substance: TORSEMIDE
     Indication: PRODUCT USED FOR UNKNOWN INDICATION
     Dosage: 1 DF, BID
     Route: 048
  6. TORADIUR                           /01036501/ [Suspect]
     Active Substance: TORSEMIDE
     Dosage: 1 DF, QD
     Route: 048
  7. ALDACTONE [Suspect]
     Active Substance: SPIRONOLACTONE
     Indication: PRODUCT USED FOR UNKNOWN INDICATION
     Dosage: 100 MG, BID
     Route: 048
  8. FRUCTOSE [Concomitant]
     Active Substance: FRUCTOSE
  9. TORADIUR                           /01036501/ [Suspect]
     Active Substance: TORSEMIDE
     Dosage: 1 DF, QOD
     Route: 048
  10. ALLOPURINOL. [Concomitant]
     Active Substance: ALLOPURINOL
  11. FOLIN                              /00024201/ [Concomitant]
     Active Substance: FOLIC ACID

REACTIONS (5)
  - Atrial fibrillation [Fatal]
  - Anaemia [Fatal]
  - Circulatory collapse [Fatal]
  - Melaena [Fatal]
  - Hepatorenal syndrome [Fatal]

NARRATIVE: CASE EVENT DATE: 20151215
